FAERS Safety Report 4866734-X (Version None)
Quarter: 2005Q4

REPORT INFORMATION
  Report Type: 
  Country: None (occurrence: None)
  Receive Date: 20051221
  Receipt Date: 20051208
  Transmission Date: 20060501
  Serious: Yes (Life-Threatening, Hospitalization, Other)
  Sender: FDA-Public Use
  Company Number: 2005147758

PATIENT
  Age: 69 Year
  Sex: Female

DRUGS (7)
  1. NEURONTIN [Suspect]
     Indication: CEREBROVASCULAR ACCIDENT
     Dosage: 600 MG (300 MG, 2 IN 1 D), ORAL
     Route: 048
     Dates: start: 20051011, end: 20051022
  2. VAXIGRIP (INFLUENZA VIRUS VACCINE POLYVALENT) [Suspect]
     Indication: ILL-DEFINED DISORDER
     Dosage: UNKNOWN (1 IN 1 D), SUBCUTANEOUS
     Route: 058
     Dates: start: 20051011
  3. ALL OTHER THERAPEUTIC PRODUCTS (ALL OTHER THERAPEUTIC PRODUCTS) [Concomitant]
  4. HYPERIUM (RILMENIDINE) [Concomitant]
  5. NEBIVOLOL (NEBIVOLOL) [Concomitant]
  6. CELECTOL [Concomitant]
  7. COZAAR [Concomitant]

REACTIONS (5)
  - DIFFICULTY IN WALKING [None]
  - DRUG INTERACTION [None]
  - FALL [None]
  - GUILLAIN-BARRE SYNDROME [None]
  - SENSORY LOSS [None]
